FAERS Safety Report 5405872-X (Version None)
Quarter: 2007Q3

REPORT INFORMATION
  Report Type: 
  Country: None (occurrence: None)
  Receive Date: 20070806
  Receipt Date: 20070725
  Transmission Date: 20080115
  Serious: Yes (Life-Threatening, Hospitalization)
  Sender: FDA-Public Use
  Company Number: AU-AMGEN-US236810

PATIENT
  Age: 56 Year
  Sex: Male

DRUGS (9)
  1. ENBREL [Suspect]
     Indication: DRUG USE FOR UNKNOWN INDICATION
     Route: 058
     Dates: end: 20060408
  2. METHOTREXATE [Suspect]
     Route: 048
     Dates: end: 20060408
  3. FOLIC ACID [Concomitant]
     Dosage: 0.5 MG DAILY
     Route: 048
  4. PREDNISOLONE [Concomitant]
     Indication: RHEUMATOID ARTHRITIS
     Dosage: 25 MG DAILY
     Route: 048
  5. COVERSYL [Concomitant]
     Dosage: 4 MG DAILY
     Route: 048
  6. LIPITOR [Concomitant]
     Indication: METABOLIC DISORDER
     Dosage: 40 MG DAILY
     Route: 048
  7. CALCITRIOL [Concomitant]
     Dosage: 500 MCG 2 TIMES ONLY
     Route: 048
  8. ASPIRIN [Concomitant]
     Indication: MYOCARDIAL ISCHAEMIA
     Dosage: 150 MG DAILY
     Route: 048
  9. ASPIRIN [Concomitant]
     Indication: MYOCARDIAL INFARCTION

REACTIONS (1)
  - PNEUMONIA [None]
